FAERS Safety Report 6486913-8 (Version None)
Quarter: 2009Q4

REPORT INFORMATION
  Report Type: 
  Country: None (occurrence: None)
  Receive Date: 20091210
  Receipt Date: 20091130
  Transmission Date: 20100525
  Serious: Yes (Other)
  Sender: FDA-Public Use
  Company Number: US-AMGEN-US377544

PATIENT
  Sex: Female
  Weight: 57.2 kg

DRUGS (11)
  1. ENBREL [Suspect]
     Indication: RHEUMATOID ARTHRITIS
     Dates: start: 20090904, end: 20090928
  2. ENBREL [Suspect]
     Dates: start: 20091012, end: 20091012
  3. VITAMIN TAB [Concomitant]
     Route: 048
     Dates: start: 20090904, end: 20091113
  4. FOLIC ACID [Concomitant]
     Route: 048
     Dates: start: 20090904, end: 20090913
  5. CAFFEINE [Concomitant]
     Route: 048
     Dates: start: 20090904, end: 20091003
  6. INFLUENZA VACCINE [Concomitant]
     Dates: start: 20090928, end: 20090928
  7. INFLUENZA VACCINE [Concomitant]
     Dates: start: 20091111, end: 20091111
  8. ADVIL [Concomitant]
     Route: 048
     Dates: start: 20090904, end: 20091003
  9. TYLENOL (CAPLET) [Concomitant]
     Route: 048
     Dates: start: 20090904, end: 20091113
  10. BENADRYL [Concomitant]
     Route: 048
     Dates: start: 20090904, end: 20091113
  11. MACROBID [Concomitant]
     Route: 048
     Dates: start: 20091023, end: 20091029

REACTIONS (3)
  - ABORTION SPONTANEOUS [None]
  - COMPLICATION OF PREGNANCY [None]
  - FOETAL HEART RATE ABNORMAL [None]
